FAERS Safety Report 9942755 (Version 1)
Quarter: 2014Q1

REPORT INFORMATION
  Report Type: Spontaneous
  Country: US (occurrence: US)
  Receive Date: 20140303
  Receipt Date: 20140303
  Transmission Date: 20141002
  Serious: No
  Sender: FDA-Public Use
  Company Number: US-ABBVIE-13P-163-1045930-00

PATIENT
  Age: 31 Year
  Sex: Female

DRUGS (3)
  1. HUMIRA [Suspect]
     Indication: PSORIASIS
     Route: 058
     Dates: start: 201002, end: 201107
  2. HUMIRA [Suspect]
     Route: 058
     Dates: start: 201208
  3. UNKNOWN INHALER [Concomitant]
     Indication: ASTHMA

REACTIONS (1)
  - Injection site haemorrhage [Recovered/Resolved]
